FAERS Safety Report 13113307 (Version 3)
Quarter: 2017Q1

REPORT INFORMATION
  Report Type: Spontaneous
  Country: US (occurrence: US)
  Receive Date: 20170113
  Receipt Date: 20170314
  Transmission Date: 20170428
  Serious: Yes (Hospitalization)
  Sender: FDA-Public Use
  Company Number: US-GLAXOSMITHKLINE-US2016196119

PATIENT
  Sex: Female

DRUGS (1)
  1. TRANSDERM SCOP [Suspect]
     Active Substance: SCOPOLAMINE
     Indication: NAUSEA
     Dosage: UNK
     Route: 062
     Dates: start: 201608

REACTIONS (5)
  - Product quality issue [Unknown]
  - Dehydration [Unknown]
  - Exposure during pregnancy [Unknown]
  - Product use issue [Unknown]
  - Drug ineffective for unapproved indication [Unknown]
